FAERS Safety Report 18911431 (Version 4)
Quarter: 2025Q4

REPORT INFORMATION
  Report Type: Report from Study
  Country: US (occurrence: US)
  Receive Date: 20210218
  Receipt Date: 20251111
  Transmission Date: 20260117
  Serious: Yes (Other)
  Sender: ROCHE
  Company Number: US-ROCHE-2769562

PATIENT
  Age: 10 Year
  Sex: Female
  Weight: 65.771 kg

DRUGS (6)
  1. ACTEMRA [Suspect]
     Active Substance: TOCILIZUMAB
     Indication: Juvenile idiopathic arthritis
     Route: 042
  2. ACTEMRA [Suspect]
     Active Substance: TOCILIZUMAB
     Dosage: ACTEMRA 200 MG/10 ML, IV SOLUTION, INFUSE (8MG/KG) BY IV ROUTE, EVERY 4 WEEK OVER NOT EXCEED 600 MG
     Route: 042
     Dates: start: 20240522
  3. ACCUTANE [Suspect]
     Active Substance: ISOTRETINOIN
     Indication: Product used for unknown indication
     Route: 065
  4. CORTISONE [Concomitant]
     Active Substance: CORTISONE
  5. LIDOCAINE AND PRILOCAINE [Concomitant]
     Active Substance: LIDOCAINE\PRILOCAINE
     Dosage: 2.5%, AS NECESSARY
     Route: 061
     Dates: start: 20230205, end: 20240819
  6. LIDOCAINE AND PRILOCAINE [Concomitant]
     Active Substance: LIDOCAINE\PRILOCAINE
     Dosage: 2.5%, AS NECESSARY
     Route: 061
     Dates: start: 20240819

REACTIONS (12)
  - Off label use [Unknown]
  - Iridocyclitis [Unknown]
  - Posture abnormal [Unknown]
  - Sacroiliitis [Unknown]
  - Neck pain [Unknown]
  - Uveitis [Unknown]
  - Myalgia [Unknown]
  - Bone pain [Unknown]
  - Blood albumin increased [Unknown]
  - Monocyte count increased [Unknown]
  - Muscle tightness [Unknown]
  - Arthralgia [Unknown]

NARRATIVE: CASE EVENT DATE: 20250113
